FAERS Safety Report 9928172 (Version 1)
Quarter: 2014Q1

REPORT INFORMATION
  Report Type: Spontaneous
  Country: US (occurrence: US)
  Receive Date: 20140227
  Receipt Date: 20140227
  Transmission Date: 20141002
  Serious: Yes (Hospitalization)
  Sender: FDA-Public Use
  Company Number: US-BAYER-2014-025617

PATIENT
  Age: 41 Year
  Sex: Male

DRUGS (3)
  1. ADEMPAS [Suspect]
     Indication: PRODUCT USED FOR UNKNOWN INDICATION
  2. TRACLEER [Suspect]
     Indication: COR PULMONALE CHRONIC
     Dosage: UNK
     Route: 048
  3. COUMADIN [Concomitant]

REACTIONS (1)
  - Fluid retention [None]
